FAERS Safety Report 5747520-5 (Version None)
Quarter: 2008Q2

REPORT INFORMATION
  Report Type: 
  Country: None (occurrence: None)
  Receive Date: 20080523
  Receipt Date: 20080514
  Transmission Date: 20081010
  Serious: Yes (Hospitalization)
  Sender: FDA-Public Use
  Company Number: JP-JNJFOC-20070400242

PATIENT
  Sex: Female
  Weight: 58 kg

DRUGS (41)
  1. REMICADE [Suspect]
     Route: 042
  2. REMICADE [Suspect]
     Route: 042
  3. REMICADE [Suspect]
     Route: 042
  4. REMICADE [Suspect]
     Route: 042
  5. REMICADE [Suspect]
     Route: 042
  6. REMICADE [Suspect]
     Route: 042
  7. REMICADE [Suspect]
     Route: 042
  8. REMICADE [Suspect]
     Route: 042
  9. REMICADE [Suspect]
     Route: 042
  10. REMICADE [Suspect]
     Route: 042
  11. REMICADE [Suspect]
     Route: 042
  12. REMICADE [Suspect]
     Route: 042
  13. REMICADE [Suspect]
     Route: 042
  14. REMICADE [Suspect]
     Route: 042
  15. REMICADE [Suspect]
     Indication: RHEUMATOID ARTHRITIS
     Route: 042
  16. RHEUMATREX [Suspect]
     Route: 048
  17. RHEUMATREX [Suspect]
     Route: 048
  18. RHEUMATREX [Suspect]
     Indication: RHEUMATOID ARTHRITIS
     Route: 048
  19. PREDNISOLONE [Suspect]
     Route: 048
  20. PREDNISOLONE [Suspect]
     Route: 048
  21. PREDNISOLONE [Suspect]
     Route: 048
  22. PREDNISOLONE [Suspect]
     Route: 048
  23. PREDNISOLONE [Suspect]
     Route: 048
  24. PREDNISOLONE [Suspect]
     Indication: RHEUMATOID ARTHRITIS
     Route: 048
  25. MOHRUS TAPE [Concomitant]
     Indication: RHEUMATOID ARTHRITIS
  26. KENACORT [Concomitant]
     Indication: RHEUMATOID ARTHRITIS
     Dosage: ^IR^
  27. ANTIHISTAMINE ES [Concomitant]
     Indication: PROPHYLAXIS
     Route: 065
     Dates: start: 20041210, end: 20060823
  28. MOBIC [Concomitant]
     Indication: RHEUMATOID ARTHRITIS
     Route: 048
  29. ADOFEED [Concomitant]
     Indication: RHEUMATOID ARTHRITIS
  30. VOLTAREN [Concomitant]
     Indication: RHEUMATOID ARTHRITIS
     Route: 054
  31. FOLIAMIN [Concomitant]
     Indication: PROPHYLAXIS
     Route: 048
  32. CYTOTEC [Concomitant]
     Indication: GASTROINTESTINAL DISORDER THERAPY
     Route: 048
  33. TAKEPRON [Concomitant]
     Indication: GASTROINTESTINAL DISORDER THERAPY
     Route: 048
  34. D-AFLA [Concomitant]
     Indication: OSTEOPOROSIS
     Route: 048
  35. LIPITOR [Concomitant]
     Indication: HYPERLIPIDAEMIA
     Route: 048
  36. VENA [Concomitant]
     Route: 048
  37. MYONAL [Concomitant]
     Indication: BACK PAIN
     Route: 048
  38. ISODINE GARGLE [Concomitant]
     Indication: PROPHYLAXIS
     Route: 048
  39. NU-LOTAN [Concomitant]
     Indication: HYPERTENSION
     Route: 048
  40. VITAMEDIN-S [Concomitant]
     Indication: MYALGIA
     Route: 048
  41. KENACORT [Concomitant]

REACTIONS (2)
  - HERPES ZOSTER [None]
  - RHEUMATOID ARTHRITIS [None]
